FAERS Safety Report 13740471 (Version 2)
Quarter: 2018Q4

REPORT INFORMATION
  Report Type: Spontaneous
  Country: FR (occurrence: FR)
  Receive Date: 20170711
  Receipt Date: 20181225
  Transmission Date: 20190204
  Serious: Yes (Hospitalization)
  Sender: FDA-Public Use
  Company Number: FR-ROCHE-1960249

PATIENT
  Age: 43 Year
  Sex: Male

DRUGS (39)
  1. SPASFON (FRANCE) [Suspect]
     Active Substance: PHLOROGLUCINOL\1,3,5-TRIMETHOXYBENZENE
     Indication: ABDOMINAL PAIN
  2. TIORFAN [Suspect]
     Active Substance: RACECADOTRIL
     Indication: DIARRHOEA
     Dosage: 200 MG MORNING, NOON AND EVENING
     Route: 048
     Dates: start: 2017
  3. ZERBAXA [Suspect]
     Active Substance: CEFTOLOZANE SULFATE\TAZOBACTAM SODIUM
     Indication: CELLULITIS
     Route: 042
     Dates: start: 20170331
  4. AMIKACIN. [Suspect]
     Active Substance: AMIKACIN
     Indication: PRODUCT USED FOR UNKNOWN INDICATION
     Route: 042
     Dates: start: 20170403, end: 20170408
  5. NEORAL [Suspect]
     Active Substance: CYCLOSPORINE
     Indication: PROPHYLAXIS AGAINST TRANSPLANT REJECTION
     Dosage: 1 TAB MORNING AND EVENING
     Route: 048
     Dates: start: 2017
  6. BACTRIM [Suspect]
     Active Substance: SULFAMETHOXAZOLE\TRIMETHOPRIM
     Indication: PNEUMOCYSTIS JIROVECII PNEUMONIA
     Route: 048
     Dates: start: 201703, end: 20170526
  7. GAVISCON (ALGINIC ACID/SODIUM BICARBONATE) [Suspect]
     Active Substance: SODIUM ALGINATE\SODIUM BICARBONATE
     Indication: GASTROOESOPHAGEAL REFLUX DISEASE
     Dosage: 1 DF, TID, PRN
     Route: 048
     Dates: start: 2017
  8. MAGNESIUM ALGINATE [Suspect]
     Active Substance: MAGNESIUM ALGINATE
     Indication: GASTROOESOPHAGEAL REFLUX DISEASE
     Dosage: 1 DOSAGE FORM, Q8H ((ALSO REPORTED AS TID)
     Route: 048
     Dates: start: 2017
  9. AMIKACIN. [Suspect]
     Active Substance: AMIKACIN
     Dosage: UNK
     Route: 042
  10. PARACETAMOL [Suspect]
     Active Substance: ACETAMINOPHEN
     Indication: PAIN
     Route: 048
     Dates: start: 2017
  11. HYDROCORTISONE. [Suspect]
     Active Substance: HYDROCORTISONE
     Indication: PRODUCT USED FOR UNKNOWN INDICATION
     Route: 065
  12. ZELITREX [Suspect]
     Active Substance: VALACYCLOVIR HYDROCHLORIDE
     Indication: PROPHYLAXIS
     Route: 048
     Dates: start: 20170504
  13. WELLVONE [Concomitant]
     Active Substance: ATOVAQUONE
     Route: 065
     Dates: start: 20170526
  14. TIENAM [Concomitant]
     Active Substance: CILASTATIN SODIUM\IMIPENEM
     Dosage: 50 MG/ 8 HRS
     Route: 065
     Dates: start: 201703, end: 20170403
  15. CELLCEPT [Suspect]
     Active Substance: MYCOPHENOLATE MOFETIL\MYCOPHENOLATE MOFETIL HYDROCHLORIDE
     Indication: PROPHYLAXIS AGAINST TRANSPLANT REJECTION
     Dosage: 1 TAB MORNING AND EVENING
     Route: 048
     Dates: start: 2017
  16. SMOFKABIVEN [Suspect]
     Active Substance: AMINO ACIDS\DEXTROSE\ELECTROLYTES NOS\SOYBEAN OIL
     Indication: PARENTERAL NUTRITION
     Dosage: 80 ML, QH, EMULSION FOR INFUSION
     Route: 042
     Dates: start: 2017, end: 2017
  17. AMIKACIN. [Suspect]
     Active Substance: AMIKACIN
     Route: 042
     Dates: start: 20170421, end: 20170424
  18. SODIUM ALGINATE [Suspect]
     Active Substance: SODIUM ALGINATE
     Indication: GASTROOESOPHAGEAL REFLUX DISEASE
     Dosage: 1 DOSAGE FORM, Q8H
     Route: 048
     Dates: start: 2017
  19. TIENAM [Suspect]
     Active Substance: CILASTATIN SODIUM\IMIPENEM
     Indication: PRODUCT USED FOR UNKNOWN INDICATION
     Dosage: 500 MILLIGRAM, Q8H
     Route: 042
     Dates: start: 201703, end: 20170403
  20. KEPPRA [Concomitant]
     Active Substance: LEVETIRACETAM
     Route: 065
     Dates: start: 20170422
  21. CYMEVAN [Suspect]
     Active Substance: GANCICLOVIR
     Indication: PROPHYLAXIS
     Route: 042
     Dates: start: 20170330, end: 20170504
  22. DITROPAN [Suspect]
     Active Substance: OXYBUTYNIN CHLORIDE
     Indication: PRODUCT USED FOR UNKNOWN INDICATION
     Dosage: 5 MILLIGRAM, TID
     Route: 048
     Dates: start: 2017, end: 20170509
  23. SPASFON (FRANCE) [Suspect]
     Active Substance: PHLOROGLUCINOL\1,3,5-TRIMETHOXYBENZENE
     Indication: PAIN
     Dosage: 2 TAB 3 TIMES/DAY IF ABDOMINAL?PAIN
     Route: 048
     Dates: start: 2017
  24. AMLOR [Concomitant]
     Active Substance: AMLODIPINE BESYLATE
     Indication: PRODUCT USED FOR UNKNOWN INDICATION
     Route: 065
     Dates: start: 20170526
  25. BISOPROLOL [Concomitant]
     Active Substance: BISOPROLOL
     Route: 065
  26. TARGOCID [Concomitant]
     Active Substance: TEICOPLANIN
     Route: 065
     Dates: start: 20170524, end: 20170529
  27. DITROPAN [Concomitant]
     Active Substance: OXYBUTYNIN CHLORIDE
     Route: 065
     Dates: start: 2017, end: 20170509
  28. URSOLVAN [Suspect]
     Active Substance: URSODIOL
     Indication: PRODUCT USED FOR UNKNOWN INDICATION
     Route: 048
     Dates: start: 20170331
  29. ACUPAN [Suspect]
     Active Substance: NEFOPAM HYDROCHLORIDE
     Indication: GASTROOESOPHAGEAL REFLUX DISEASE
     Dosage: IF PAIN
     Route: 042
     Dates: start: 2017
  30. CANCIDAS [Suspect]
     Active Substance: CASPOFUNGIN ACETATE
     Indication: FUNGAL INFECTION
     Route: 042
     Dates: start: 2017
  31. EUPRESSYL [Suspect]
     Active Substance: URAPIDIL
     Indication: HYPERTENSION
     Route: 042
     Dates: start: 201703, end: 20170330
  32. URAPIDIL [Suspect]
     Active Substance: URAPIDIL
     Indication: HYPERTENSION
     Route: 042
     Dates: start: 201703, end: 20170330
  33. AMIKACIN. [Suspect]
     Active Substance: AMIKACIN
     Dosage: UNK
     Route: 042
     Dates: start: 20170607, end: 20170610
  34. ZYVOXID [Suspect]
     Active Substance: LINEZOLID
     Indication: PRODUCT USED FOR UNKNOWN INDICATION
     Dosage: 600 MILLIGRAM, Q12H
     Route: 042
     Dates: start: 201703, end: 20170430
  35. SOLU-MEDROL [Suspect]
     Active Substance: METHYLPREDNISOLONE SODIUM SUCCINATE
     Indication: PRODUCT USED FOR UNKNOWN INDICATION
     Route: 042
     Dates: start: 2017, end: 20170609
  36. EUPANTOL [Suspect]
     Active Substance: PANTOPRAZOLE SODIUM
     Indication: GASTROOESOPHAGEAL REFLUX DISEASE
     Route: 042
     Dates: start: 2017
  37. RAMIPRIL. [Concomitant]
     Active Substance: RAMIPRIL
     Route: 065
     Dates: start: 20170331
  38. AMIKACIN. [Suspect]
     Active Substance: AMIKACIN
     Route: 042
     Dates: start: 20170526, end: 20170529
  39. ZYVOXID [Concomitant]
     Active Substance: LINEZOLID
     Dosage: 600 MG/12 HR
     Route: 065
     Dates: start: 201703, end: 20170430

REACTIONS (3)
  - Amnesia [Not Recovered/Not Resolved]
  - Pancytopenia [Recovered/Resolved]
  - Confusional state [Not Recovered/Not Resolved]

NARRATIVE: CASE EVENT DATE: 20170329
